FAERS Safety Report 11809592 (Version 17)
Quarter: 2016Q3

REPORT INFORMATION
  Report Type: Report from Study
  Country: CA (occurrence: CA)
  Receive Date: 20151208
  Receipt Date: 20160902
  Transmission Date: 20161109
  Serious: Yes (Hospitalization, Other)
  Sender: FDA-Public Use
  Company Number: CA-ROCHE-1631725

PATIENT
  Age: 63 Year
  Sex: Female

DRUGS (9)
  1. ACTEMRA [Suspect]
     Active Substance: TOCILIZUMAB
     Indication: RHEUMATOID ARTHRITIS
     Route: 042
     Dates: start: 20150904, end: 20160425
  2. BENADRYL [Suspect]
     Active Substance: DIPHENHYDRAMINE HYDROCHLORIDE
     Indication: PRODUCT USED FOR UNKNOWN INDICATION
     Route: 065
  3. VOLTAREN [Concomitant]
     Active Substance: DICLOFENAC SODIUM
  4. CYMBALTA [Concomitant]
     Active Substance: DULOXETINE HYDROCHLORIDE
  5. LYRICA [Concomitant]
     Active Substance: PREGABALIN
  6. ACTEMRA [Suspect]
     Active Substance: TOCILIZUMAB
     Indication: RHEUMATOID ARTHRITIS
     Route: 058
     Dates: start: 20160628
  7. FOLIC ACID. [Concomitant]
     Active Substance: FOLIC ACID
  8. DIPHENHYDRAMINE. [Concomitant]
     Active Substance: DIPHENHYDRAMINE
     Indication: PREMEDICATION
     Route: 048
     Dates: start: 20160201
  9. METHOTREXATE. [Suspect]
     Active Substance: METHOTREXATE
     Indication: PRODUCT USED FOR UNKNOWN INDICATION
     Route: 065
     Dates: end: 201605

REACTIONS (28)
  - Pneumonitis [Unknown]
  - Stress [Unknown]
  - Musculoskeletal chest pain [Not Recovered/Not Resolved]
  - Fatigue [Not Recovered/Not Resolved]
  - Drug effect incomplete [Unknown]
  - Liver function test increased [Not Recovered/Not Resolved]
  - Haematoma [Not Recovered/Not Resolved]
  - Blood pressure increased [Unknown]
  - Enuresis [Not Recovered/Not Resolved]
  - Laceration [Not Recovered/Not Resolved]
  - Abdominal pain [Unknown]
  - Renal pain [Not Recovered/Not Resolved]
  - Gastroenteritis [Not Recovered/Not Resolved]
  - Pain in extremity [Not Recovered/Not Resolved]
  - Pain [Unknown]
  - Hypertension [Not Recovered/Not Resolved]
  - Oral herpes [Unknown]
  - Fall [Unknown]
  - Diverticulitis [Recovering/Resolving]
  - Hypertension [Recovering/Resolving]
  - Pain [Not Recovered/Not Resolved]
  - Fatigue [Unknown]
  - Confusional state [Not Recovered/Not Resolved]
  - Dysgeusia [Unknown]
  - Flushing [Unknown]
  - Headache [Unknown]
  - Blood pressure increased [Unknown]
  - Dyspnoea [Not Recovered/Not Resolved]

NARRATIVE: CASE EVENT DATE: 20150904
